FAERS Safety Report 18544071 (Version 1)
Quarter: 2020Q4

REPORT INFORMATION
  Report Type: Spontaneous
  Country: US (occurrence: US)
  Receive Date: 20201125
  Receipt Date: 20201125
  Transmission Date: 20210114
  Serious: No
  Sender: FDA-Public Use
  Company Number: US-CELGENEUS-USA-20201105415

PATIENT
  Sex: Male

DRUGS (6)
  1. THALOMID [Suspect]
     Active Substance: THALIDOMIDE
     Dosage: 100 MILLIGRAM
     Route: 048
     Dates: start: 20180508
  2. THALOMID [Suspect]
     Active Substance: THALIDOMIDE
     Dosage: 150-100 MG
     Route: 048
     Dates: start: 201611
  3. THALOMID [Suspect]
     Active Substance: THALIDOMIDE
     Dosage: 100 MILLIGRAM
     Route: 048
     Dates: start: 202002
  4. THALOMID [Suspect]
     Active Substance: THALIDOMIDE
     Indication: OFF LABEL USE
     Dosage: 100-200 MG
     Route: 048
     Dates: start: 201606
  5. THALOMID [Suspect]
     Active Substance: THALIDOMIDE
     Dosage: 50-100 MG
     Route: 048
     Dates: start: 201902
  6. THALOMID [Suspect]
     Active Substance: THALIDOMIDE
     Indication: CUTANEOUS LUPUS ERYTHEMATOSUS
     Dosage: 50 MILLIGRAM
     Route: 048
     Dates: start: 201604

REACTIONS (1)
  - Back pain [Recovered/Resolved]
